FAERS Safety Report 5416528-1 (Version None)
Quarter: 2007Q3

REPORT INFORMATION
  Report Type: 
  Country: None (occurrence: None)
  Receive Date: 20070814
  Receipt Date: 20070803
  Transmission Date: 20080115
  Serious: Yes (Life-Threatening)
  Sender: FDA-Public Use
  Company Number: 07H-083-0313002-00

PATIENT
  Age: 14 Year
  Sex: Female

DRUGS (5)
  1. PENTOTHAL [Suspect]
     Indication: DRUG USE FOR UNKNOWN INDICATION
     Dosage: 300 MG, ONCE, INTRAVENOUS
     Route: 042
     Dates: start: 20070709, end: 20070709
  2. ATRACURIUM BESYLATE [Suspect]
     Indication: DRUG USE FOR UNKNOWN INDICATION
     Dosage: 40 MG, ONCE, INTRAVENOUS
     Route: 042
     Dates: start: 20070709, end: 20070709
  3. SEVOFLURANE [Concomitant]
  4. EUTIROX                (LEVOTHYROXINE) [Concomitant]
  5. OXYGEN              (OXYGEN) [Concomitant]

REACTIONS (3)
  - ANAESTHETIC COMPLICATION [None]
  - ANAPHYLACTIC REACTION [None]
  - PULSE ABSENT [None]
